FAERS Safety Report 20966573 (Version 6)
Quarter: 2022Q4

REPORT INFORMATION
  Report Type: Spontaneous
  Country: CA (occurrence: CA)
  Receive Date: 20220616
  Receipt Date: 20221208
  Transmission Date: 20230113
  Serious: Yes (Other)
  Sender: FDA-Public Use
  Company Number: CA-CELLTRION INC.-2021CA019234

PATIENT

DRUGS (18)
  1. INFLECTRA [Suspect]
     Active Substance: INFLIXIMAB-DYYB
     Indication: Crohn^s disease
     Dosage: 1000 MG, INDUCTION DOSES 0, 2, 6, THEN EVERY 8 WEEKS
     Route: 042
     Dates: start: 20211228
  2. INFLECTRA [Suspect]
     Active Substance: INFLIXIMAB-DYYB
     Dosage: 1000 MG, INDUCTION DOSES 0, 2, 6, THEN EVERY 8 WEEKS
     Route: 042
     Dates: start: 20211228
  3. INFLECTRA [Suspect]
     Active Substance: INFLIXIMAB-DYYB
     Dosage: 1000 MG, INDUCTION DOSES 0, 2, 6, THEN EVERY 8 WEEKS
     Route: 042
     Dates: start: 20211228
  4. INFLECTRA [Suspect]
     Active Substance: INFLIXIMAB-DYYB
     Dosage: 1000 MG, INDUCTION DOSES 0, 2, 6, THEN EVERY 8 WEEKS
     Route: 042
     Dates: start: 20220111
  5. INFLECTRA [Suspect]
     Active Substance: INFLIXIMAB-DYYB
     Dosage: 1000 MG, INDUCTION DOSES 0, 2, 6, THEN EVERY 8 WEEKS
     Route: 042
     Dates: start: 20220210
  6. INFLECTRA [Suspect]
     Active Substance: INFLIXIMAB-DYYB
     Dosage: 1000 MG, INDUCTION DOSES 0, 2, 6, THEN EVERY 8 WEEKS
     Route: 042
     Dates: start: 20220412
  7. INFLECTRA [Suspect]
     Active Substance: INFLIXIMAB-DYYB
     Dosage: 1000 MG, INDUCTION DOSES 0, 2, 6, THEN EVERY 8 WEEKS
     Route: 042
     Dates: start: 20220606
  8. INFLECTRA [Suspect]
     Active Substance: INFLIXIMAB-DYYB
     Dosage: 1000 MG, EVERY 8 WEEK INDUCTION DOSES 0, 2, 6, THEN EVERY 8 WEEKS
     Route: 042
     Dates: start: 20220805
  9. INFLECTRA [Suspect]
     Active Substance: INFLIXIMAB-DYYB
     Dosage: 1000 MG, EVERY 8 WEEK INDUCTION DOSES 0, 2, 6, THEN EVERY 8 WEEKS
     Route: 042
     Dates: start: 20220927
  10. INFLECTRA [Suspect]
     Active Substance: INFLIXIMAB-DYYB
     Dosage: 1000 MG, EVERY 8 WEEKS, INDUCTION DOSES 0, 2, 6, THEN EVERY 8 WEEKS
     Route: 042
     Dates: start: 20221128
  11. CALCIUM [Concomitant]
     Active Substance: CALCIUM
     Dosage: 1 DF,DOSAGE NOT AVAILABLE
     Route: 048
  12. CALCIUM [Concomitant]
     Active Substance: CALCIUM
     Dosage: 1 DF,DOSAGE NOT AVAILABLE
     Route: 048
     Dates: start: 20211210
  13. COLACE [Concomitant]
     Active Substance: DOCUSATE SODIUM
     Dosage: 1 DF, DOSAGE NOT AVAILABLE
     Route: 065
  14. POLYETHYLENE GLYCOL 3350 [Concomitant]
     Active Substance: POLYETHYLENE GLYCOL 3350
     Dosage: 1 DF, DOSAGE NOT AVAILABLE
     Route: 065
  15. PREDNISONE [Concomitant]
     Active Substance: PREDNISONE
     Dosage: 30 MG, DOSAGE NOT AVAILABLE
     Route: 048
  16. PREDNISONE [Concomitant]
     Active Substance: PREDNISONE
     Dosage: 30 MG, DOSAGE NOT AVAILABLE
     Route: 048
     Dates: start: 20211210
  17. CHOLECALCIFEROL [Concomitant]
     Active Substance: CHOLECALCIFEROL
     Dosage: 1000 MG DOSAGE NOT AVAILABLE
     Route: 048
  18. CHOLECALCIFEROL [Concomitant]
     Active Substance: CHOLECALCIFEROL
     Dosage: 1000 MG DOSAGE NOT AVAILABLE
     Route: 048
     Dates: start: 20211210

REACTIONS (13)
  - Neuropathy peripheral [Unknown]
  - Sinusitis bacterial [Not Recovered/Not Resolved]
  - Ear infection [Not Recovered/Not Resolved]
  - Off label use [Unknown]
  - Off label use [Unknown]
  - Intentional product use issue [Unknown]
  - Condition aggravated [Recovering/Resolving]
  - Arthralgia [Unknown]
  - Peripheral swelling [Unknown]
  - Weight increased [Not Recovered/Not Resolved]
  - Oedema peripheral [Unknown]
  - Weight decreased [Unknown]
  - Poor venous access [Recovered/Resolved]

NARRATIVE: CASE EVENT DATE: 20220101
